FAERS Safety Report 15543825 (Version 1)
Quarter: 2018Q4

REPORT INFORMATION
  Report Type: Spontaneous
  Country: JP (occurrence: JP)
  Receive Date: 20181023
  Receipt Date: 20181023
  Transmission Date: 20190205
  Serious: Yes (Death, Other)
  Sender: FDA-Public Use
  Company Number: JP-DSJP-DSJ-2018-140826

PATIENT

DRUGS (1)
  1. LIXIANA OD TABLETS 15MG [Suspect]
     Active Substance: EDOXABAN TOSYLATE
     Indication: DEEP VEIN THROMBOSIS
     Dosage: 15 MG, QD
     Route: 048

REACTIONS (5)
  - Underdose [Unknown]
  - Sepsis [Not Recovered/Not Resolved]
  - Haemorrhage subcutaneous [Unknown]
  - Renal impairment [Not Recovered/Not Resolved]
  - Pneumonia [Fatal]
